FAERS Safety Report 9988875 (Version 1)
Quarter: 2014Q1

REPORT INFORMATION
  Report Type: Spontaneous
  Country: US (occurrence: US)
  Receive Date: 20140310
  Receipt Date: 20140310
  Transmission Date: 20141002
  Serious: Yes (Other)
  Sender: FDA-Public Use
  Company Number: US-SA-2014SA028273

PATIENT
  Sex: Male

DRUGS (8)
  1. LANTUS SOLOSTAR [Suspect]
     Dosage: DOSE:40 UNIT(S)
     Route: 051
     Dates: start: 2007, end: 201312
  2. SOLOSTAR [Concomitant]
     Dates: start: 2007, end: 201312
  3. CLONAZEPAM [Concomitant]
  4. CRESTOR [Concomitant]
  5. LISINOPRIL [Concomitant]
  6. METFORMIN [Concomitant]
  7. ASPIRIN [Concomitant]
  8. FISH OIL [Concomitant]

REACTIONS (6)
  - Deep vein thrombosis [Unknown]
  - Glycosylated haemoglobin increased [Unknown]
  - Mental disorder [Unknown]
  - Depression [Unknown]
  - Weight decreased [Unknown]
  - Drug dose omission [Unknown]
